FAERS Safety Report 12644054 (Version 9)
Quarter: 2024Q1

REPORT INFORMATION
  Report Type: Spontaneous
  Country: FR (occurrence: FR)
  Receive Date: 20160811
  Receipt Date: 20240325
  Transmission Date: 20240410
  Serious: Yes (Hospitalization, Other)
  Sender: FDA-Public Use
  Company Number: FR-PFIZER INC-2016378768

PATIENT

DRUGS (11)
  1. ACETAMINOPHEN [Suspect]
     Active Substance: ACETAMINOPHEN
     Indication: Product used for unknown indication
     Dosage: UNK
  2. HYDROCORTISONE [Suspect]
     Active Substance: HYDROCORTISONE
     Indication: Product used for unknown indication
     Dosage: 20 MG, QD
  3. LERCANIDIPINE [Suspect]
     Active Substance: LERCANIDIPINE
     Indication: Product used for unknown indication
     Dosage: 10 MG, QD (10 MG, 1X/DAY)
  4. LYRICA [Suspect]
     Active Substance: PREGABALIN
     Indication: Product used for unknown indication
     Dosage: 20 MG, QD
     Route: 048
     Dates: start: 201209, end: 20150101
  5. ESOMEPRAZOLE [Suspect]
     Active Substance: ESOMEPRAZOLE
     Indication: Product used for unknown indication
     Dosage: UNK
     Route: 048
  6. KETAMINE [Suspect]
     Active Substance: KETAMINE
     Indication: Product used for unknown indication
     Dosage: 50 MG (QMO)
     Route: 041
     Dates: start: 201410, end: 201411
  7. KETAMINE [Suspect]
     Active Substance: KETAMINE
     Dosage: 50 MG (QMO)
     Route: 041
     Dates: start: 202011
  8. KETAMINE [Suspect]
     Active Substance: KETAMINE
     Dosage: 50 MG (50 MG, QMO50MG IN JULY 2014, OCTOBER 2014, NOVEMBER 2014)
     Route: 041
     Dates: start: 201407, end: 201407
  9. KETAMINE [Suspect]
     Active Substance: KETAMINE
     Dosage: 70 MG (QMO)
     Route: 041
     Dates: start: 201501, end: 201502
  10. KETAMINE [Suspect]
     Active Substance: KETAMINE
     Dosage: 70 MG (QMO)
     Route: 041
     Dates: start: 201502
  11. SKENAN [Suspect]
     Active Substance: MORPHINE SULFATE
     Indication: Product used for unknown indication
     Dosage: 80 MG, QD (40 MG, 2X/DAY)
     Route: 048

REACTIONS (1)
  - Hepatic cytolysis [Recovered/Resolved]

NARRATIVE: CASE EVENT DATE: 20150323
